FAERS Safety Report 8108600-2 (Version None)
Quarter: 2012Q1

REPORT INFORMATION
  Report Type: 
  Country: None (occurrence: None)
  Receive Date: 20120202
  Receipt Date: 20120120
  Transmission Date: 20120608
  Serious: Yes (Hospitalization)
  Sender: FDA-Public Use
  Company Number: PHHY2012AU004625

PATIENT
  Sex: Male

DRUGS (2)
  1. CLOZARIL [Suspect]
     Dosage: 350 MG
     Dates: start: 20050630
  2. CLOZARIL [Suspect]
     Dosage: 250 MG, UNK

REACTIONS (2)
  - SCHIZOPHRENIA [None]
  - MENTAL IMPAIRMENT [None]
